FAERS Safety Report 12667280 (Version 1)
Quarter: 2016Q3

REPORT INFORMATION
  Report Type: Spontaneous
  Country: US (occurrence: None)
  Receive Date: 20160818
  Receipt Date: 20160818
  Transmission Date: 20161109
  Serious: No
  Sender: FDA-Public Use
  Company Number: None

PATIENT
  Age: 63 Year
  Sex: Male

DRUGS (9)
  1. XALKORI [Suspect]
     Active Substance: CRIZOTINIB
     Indication: PAIN
     Route: 048
     Dates: start: 201605
  2. LEVOTHYROXINE. [Concomitant]
     Active Substance: LEVOTHYROXINE
  3. ESCITALOPRAM [Concomitant]
     Active Substance: ESCITALOPRAM OXALATE
  4. OXYBUTYNIN [Concomitant]
     Active Substance: OXYBUTYNIN
  5. NYSTATIN. [Concomitant]
     Active Substance: NYSTATIN
  6. POT CL MICRO [Concomitant]
  7. WARFARIN [Concomitant]
     Active Substance: WARFARIN
  8. PANTOPRAZOLE [Concomitant]
     Active Substance: PANTOPRAZOLE SODIUM
  9. FUROSEMIDE. [Concomitant]
     Active Substance: FUROSEMIDE

REACTIONS (3)
  - Alopecia [None]
  - Tremor [None]
  - Pulmonary embolism [None]

NARRATIVE: CASE EVENT DATE: 2016
